FAERS Safety Report 20923617 (Version 1)
Quarter: 2022Q2

REPORT INFORMATION
  Report Type: Other
  Country: GB (occurrence: GB)
  Receive Date: 20220607
  Receipt Date: 20220607
  Transmission Date: 20220721
  Serious: No
  Sender: FDA-Public Use
  Company Number: GB-MHRA-MED-202205221507408280-JPAA0

PATIENT
  Age: 35 Year
  Sex: Female
  Weight: 59 kg

DRUGS (2)
  1. SERTRALINE [Suspect]
     Active Substance: SERTRALINE HYDROCHLORIDE
     Indication: Product used for unknown indication
     Dosage: 100 MG
     Route: 065
  2. SERTRALINE [Suspect]
     Active Substance: SERTRALINE HYDROCHLORIDE
     Dosage: 50 MG, QD PREVIOUSLY 100 MG
     Route: 065

REACTIONS (1)
  - Loss of libido [Not Recovered/Not Resolved]
